FAERS Safety Report 17424134 (Version 2)
Quarter: 2020Q1

REPORT INFORMATION
  Report Type: Spontaneous
  Country: CA (occurrence: CA)
  Receive Date: 20200217
  Receipt Date: 20200221
  Transmission Date: 20200409
  Serious: Yes (Other)
  Sender: FDA-Public Use
  Company Number: CA-ORION CORPORATION ORION PHARMA-TREX2020-0857

PATIENT
  Age: 60 Year
  Sex: Male

DRUGS (8)
  1. TURMERIC [Concomitant]
     Active Substance: HERBALS\TURMERIC
     Route: 065
  2. VITAMIN B12 [Concomitant]
     Active Substance: CYANOCOBALAMIN
     Route: 065
  3. CELEBREX [Concomitant]
     Active Substance: CELECOXIB
     Dosage: AS NEEDED
     Route: 065
  4. PERINDOPRIL [Concomitant]
     Active Substance: PERINDOPRIL
     Route: 065
  5. HYDROCHLOROTHIAZIDE. [Concomitant]
     Active Substance: HYDROCHLOROTHIAZIDE
     Route: 065
  6. FOLIC ACID. [Concomitant]
     Active Substance: FOLIC ACID
     Route: 065
  7. CRESTOR [Concomitant]
     Active Substance: ROSUVASTATIN CALCIUM
     Route: 065
  8. METHOTREXATE (TRADE NAME UNKNOWN) [Suspect]
     Active Substance: METHOTREXATE
     Indication: PRODUCT USED FOR UNKNOWN INDICATION
     Route: 048

REACTIONS (7)
  - Diverticulum [Unknown]
  - Rheumatoid arthritis [Unknown]
  - Chest X-ray abnormal [Unknown]
  - Rheumatoid nodule [Unknown]
  - Bladder repair [Unknown]
  - Hypertension [Unknown]
  - Hyperlipidaemia [Unknown]
